FAERS Safety Report 7085275-5 (Version None)
Quarter: 2010Q4

REPORT INFORMATION
  Report Type: 
  Country: None (occurrence: None)
  Receive Date: 20101105
  Receipt Date: 20101028
  Transmission Date: 20110411
  Serious: Yes (Other)
  Sender: FDA-Public Use
  Company Number: US-ASTRAZENECA-2010SE51192

PATIENT
  Age: 59 Year
  Sex: Female

DRUGS (5)
  1. ARIMIDEX [Suspect]
     Indication: BREAST CANCER
     Route: 048
  2. ARIMIDEX [Suspect]
     Route: 048
     Dates: start: 20100401
  3. ACTONEL [Concomitant]
  4. CALCIUM [Concomitant]
  5. FISH OIL [Concomitant]

REACTIONS (2)
  - BONE CANCER METASTATIC [None]
  - METASTASES TO SPINE [None]
